FAERS Safety Report 18667200 (Version 2)
Quarter: 2021Q1

REPORT INFORMATION
  Report Type: Spontaneous
  Country: IE (occurrence: IE)
  Receive Date: 20201228
  Receipt Date: 20210311
  Transmission Date: 20210419
  Serious: Yes (Hospitalization)
  Sender: FDA-Public Use
  Company Number: IE-JNJFOC-20201243110

PATIENT
  Age: 12 Year
  Sex: Male

DRUGS (4)
  1. INFLIXIMAB, RECOMBINANT [Suspect]
     Active Substance: INFLIXIMAB
     Indication: CROHN^S DISEASE
     Route: 042
     Dates: start: 2019
  2. VITAMIN D [ERGOCALCIFEROL] [Concomitant]
     Active Substance: ERGOCALCIFEROL
  3. INFLIXIMAB, RECOMBINANT [Suspect]
     Active Substance: INFLIXIMAB
     Dosage: 10 MG/KG EVERY EIGHT WEEKS, B/N DW3815 EXP 11/24?ADDITIONAL INFO: CT?P13 (INFLIXIMAB): 100MG;
     Route: 042
     Dates: start: 202010
  4. INFLIXIMAB, RECOMBINANT [Suspect]
     Active Substance: INFLIXIMAB
     Dosage: 10 MG/KG EVERY EIGHT WEEKS, B/N DW3815 EXP 11/24?ADDITIONAL INFO: CT?P13 (INFLIXIMAB): 100MG;
     Route: 042
     Dates: start: 202008

REACTIONS (2)
  - Streptococcal infection [Recovered/Resolved]
  - Sinusitis [Recovered/Resolved]

NARRATIVE: CASE EVENT DATE: 202011
